FAERS Safety Report 19203369 (Version 1)
Quarter: 2021Q2

REPORT INFORMATION
  Report Type: Spontaneous
  Country: FR (occurrence: FR)
  Receive Date: 20210503
  Receipt Date: 20210503
  Transmission Date: 20210717
  Serious: Yes (Other)
  Sender: FDA-Public Use
  Company Number: FR-SA-2021SA135866

PATIENT
  Age: 47 Year
  Sex: Male

DRUGS (2)
  1. STILNOX [Suspect]
     Active Substance: ZOLPIDEM TARTRATE
     Indication: SLEEP DISORDER
     Dosage: 14 DF, TOTAL (7 OR 14 TABLETS ON JANUARY 18
     Route: 048
     Dates: start: 20210114, end: 20210118
  2. TERCIAN [Suspect]
     Active Substance: CYAMEMAZINE
     Dosage: 30 DF, TOTAL
     Route: 048
     Dates: start: 20210114, end: 20210118

REACTIONS (3)
  - Drug dependence [Unknown]
  - Malaise [Recovered/Resolved]
  - Intentional product misuse [Unknown]

NARRATIVE: CASE EVENT DATE: 2018
